FAERS Safety Report 8185594-5 (Version None)
Quarter: 2012Q1

REPORT INFORMATION
  Report Type: 
  Country: None (occurrence: None)
  Receive Date: 20120305
  Receipt Date: 20120220
  Transmission Date: 20120608
  Serious: Yes (Other)
  Sender: FDA-Public Use
  Company Number: PHHY2012FR015799

PATIENT
  Sex: Male

DRUGS (8)
  1. MIDODRINE HYDROCHLORIDE [Suspect]
     Indication: ORTHOSTATIC HYPOTENSION
     Dosage: 1 DF, BID
     Route: 048
     Dates: start: 20111204
  2. ALPRAZOLAM [Concomitant]
     Dosage: 0.5 MG, TID
  3. EXELON [Suspect]
     Dosage: 9.5 MG/24 HS
     Route: 062
     Dates: start: 20111207
  4. MODOPAR [Concomitant]
     Dosage: 125 MG, 2 DF ON MORNING AND MIDDAYS AND 1 DF ON EVENINGS
     Route: 048
  5. RISPERDAL [Concomitant]
     Dosage: UNK
     Dates: start: 20111011, end: 20111021
  6. SERTRALINE HYDROCHLORIDE [Suspect]
     Dosage: 25 MG, QD
     Dates: start: 20111215, end: 20111215
  7. AMLODIPINE [Concomitant]
     Dosage: 5 MG, QD
     Route: 048
  8. ASPIRIN [Concomitant]
     Dosage: 75 MG, QD

REACTIONS (2)
  - BRADYCARDIA [None]
  - MALAISE [None]
